FAERS Safety Report 4654068-8 (Version None)
Quarter: 2005Q2

REPORT INFORMATION
  Report Type: 
  Country: None (occurrence: None)
  Receive Date: 20050504
  Receipt Date: 20050419
  Transmission Date: 20051028
  Serious: Yes (Death)
  Sender: FDA-Public Use
  Company Number: DSA_26355_2005

PATIENT
  Age: 80 Year
  Sex: Male

DRUGS (2)
  1. TILDIEM [Suspect]
     Dosage: 300 MG Q DAY PO
     Route: 048
     Dates: start: 20040901
  2. SIMVASTATIN [Suspect]
     Dosage: 10 MG Q DAY PO
     Route: 048

REACTIONS (2)
  - ACUTE MYOCARDIAL INFARCTION [None]
  - CARDIAC ARREST [None]
